FAERS Safety Report 6978951-3 (Version None)
Quarter: 2010Q3

REPORT INFORMATION
  Report Type: 
  Country: None (occurrence: None)
  Receive Date: 20100913
  Receipt Date: 20100903
  Transmission Date: 20110219
  Serious: Yes (Other)
  Sender: FDA-Public Use
  Company Number: JP-MERCK-1008USA03260

PATIENT
  Age: 5 Year
  Sex: Female
  Weight: 19 kg

DRUGS (9)
  1. SINGULAIR [Suspect]
     Indication: ASTHMA
     Route: 048
     Dates: start: 20100809
  2. CALONAL [Suspect]
     Indication: PYREXIA
     Route: 048
     Dates: start: 20100809, end: 20100810
  3. HOKUNALIN [Suspect]
     Indication: ASTHMA
     Route: 061
     Dates: start: 20100809
  4. CLARITHROMYCIN [Concomitant]
     Route: 048
     Dates: start: 20100806
  5. MUCODYNE [Concomitant]
     Route: 048
     Dates: start: 20100730
  6. MUCOSIL-10 [Concomitant]
     Route: 048
     Dates: start: 20100730
  7. ASVERIN [Concomitant]
     Route: 048
     Dates: start: 20100730
  8. TELGIN-G [Concomitant]
     Route: 048
     Dates: start: 20100730
  9. MEPTIN [Concomitant]
     Route: 048
     Dates: start: 20100730

REACTIONS (2)
  - HYPOAESTHESIA [None]
  - PAIN IN EXTREMITY [None]
